FAERS Safety Report 13685180 (Version 1)
Quarter: 2017Q2

REPORT INFORMATION
  Report Type: Spontaneous
  Country: FR (occurrence: FR)
  Receive Date: 20170623
  Receipt Date: 20170623
  Transmission Date: 20170830
  Serious: Yes (Death, Other)
  Sender: FDA-Public Use
  Company Number: FR-009507513-1706FRA000307

PATIENT
  Age: 91 Year
  Sex: Male

DRUGS (1)
  1. FIDAXOMICIN [Suspect]
     Active Substance: FIDAXOMICIN
     Indication: CLOSTRIDIUM DIFFICILE INFECTION
     Dosage: 1 TABLET, ONLY ONE (IN THE EVENING)
     Route: 048
     Dates: start: 20170524, end: 20170524

REACTIONS (2)
  - Dysphagia [Unknown]
  - Sepsis syndrome [Fatal]

NARRATIVE: CASE EVENT DATE: 201705
